FAERS Safety Report 13245365 (Version 1)
Quarter: 2017Q1

REPORT INFORMATION
  Report Type: Report from Study
  Country: US (occurrence: US)
  Receive Date: 20170217
  Receipt Date: 20170217
  Transmission Date: 20170428
  Serious: Yes (Death)
  Sender: FDA-Public Use
  Company Number: US-ASTRAZENECA-2017SE00599

PATIENT
  Age: 205 Day
  Sex: Male
  Weight: 3 kg

DRUGS (3)
  1. PULMICORT UNSPECIFIED [Suspect]
     Active Substance: BUDESONIDE
     Route: 055
  2. SYNAGIS [Suspect]
     Active Substance: PALIVIZUMAB
     Indication: PREMATURE BABY
     Route: 030
  3. ALBUTEROL. [Concomitant]
     Active Substance: ALBUTEROL

REACTIONS (2)
  - Death [Fatal]
  - Choking [Unknown]

NARRATIVE: CASE EVENT DATE: 20161217
